FAERS Safety Report 9010409 (Version 1)
Quarter: 2013Q1

REPORT INFORMATION
  Report Type: Spontaneous
  Country: US (occurrence: US)
  Receive Date: 20130109
  Receipt Date: 20130109
  Transmission Date: 20140127
  Serious: Yes (Death)
  Sender: FDA-Public Use
  Company Number: US-AMGEN-USASP2013001204

PATIENT
  Age: 75 Year
  Sex: Female

DRUGS (10)
  1. ENBREL [Suspect]
     Indication: RHEUMATOID ARTHRITIS
     Dosage: 50 MG, QWK
     Route: 058
  2. CELEXA                             /00582602/ [Concomitant]
     Dosage: 10 MG, UNK
  3. TRAMADOL HCL [Concomitant]
     Dosage: 50 MG, UNK
  4. ARANESP [Concomitant]
     Dosage: 100 MUG, UNK
  5. COLACE [Concomitant]
     Dosage: 100 MG, UNK
  6. NAMENDA [Concomitant]
     Dosage: 10 MG, UNK
  7. SINGULAIR [Concomitant]
     Dosage: 4 MG, UNK
  8. VITAMIN D3 [Concomitant]
     Dosage: UNK
  9. MULTIVITAMINS, PLAIN [Concomitant]
     Dosage: UNK
  10. ICAPS [Concomitant]
     Dosage: UNK

REACTIONS (1)
  - Death [Fatal]
